FAERS Safety Report 25276287 (Version 1)
Quarter: 2025Q2

REPORT INFORMATION
  Report Type: Spontaneous
  Country: US (occurrence: US)
  Receive Date: 20250507
  Receipt Date: 20250507
  Transmission Date: 20250717
  Serious: No
  Sender: DR REDDYS
  Company Number: US-DRL-USA-USA/2025/05/006498

PATIENT
  Age: 5 Decade
  Sex: Male

DRUGS (4)
  1. TADALAFIL [Suspect]
     Active Substance: TADALAFIL
     Indication: Priapism
  2. HYDROXYUREA [Concomitant]
     Active Substance: HYDROXYUREA
     Indication: Priapism
  3. PSEUDOEPHEDRINE [Concomitant]
     Active Substance: PSEUDOEPHEDRINE
     Indication: Priapism
  4. TERBUTALINE [Concomitant]
     Active Substance: TERBUTALINE
     Indication: Priapism

REACTIONS (1)
  - Drug ineffective for unapproved indication [Unknown]
